FAERS Safety Report 25632020 (Version 5)
Quarter: 2025Q4

REPORT INFORMATION
  Report Type: Report from Study
  Country: US (occurrence: US)
  Receive Date: 20250801
  Receipt Date: 20251103
  Transmission Date: 20260118
  Serious: Yes (Hospitalization, Other)
  Sender: ACADIA PHARMACEUTICALS
  Company Number: US-ACADIA PHARMACEUTICALS INC.-ACA-2025-PIM-008826

PATIENT
  Age: 71 Year
  Sex: Male

DRUGS (2)
  1. NUPLAZID [Suspect]
     Active Substance: PIMAVANSERIN TARTRATE
     Indication: Parkinson^s disease psychosis
     Dosage: 34 MILLIGRAM, QD
     Route: 048
     Dates: start: 20250415
  2. GOCOVRI [Concomitant]
     Active Substance: AMANTADINE
     Dosage: UNK

REACTIONS (3)
  - Pneumonia [Recovered/Resolved]
  - Prostatic abscess [Recovered/Resolved]
  - Urinary tract infection [Recovered/Resolved]

NARRATIVE: CASE EVENT DATE: 20250701
